FAERS Safety Report 8942440 (Version 1)
Quarter: 2012Q4

REPORT INFORMATION
  Report Type: 
  Country: DE (occurrence: DE)
  Receive Date: 20121204
  Receipt Date: 20121204
  Transmission Date: 20130627
  Serious: Yes (Other)
  Sender: FDA-Public Use
  Company Number: DE-ELI_LILLY_AND_COMPANY-DE201211007955

PATIENT
  Age: 79 Year
  Sex: Male

DRUGS (11)
  1. HUMALOG LISPRO [Suspect]
     Indication: DIABETES MELLITUS
     Dosage: UNK
     Route: 058
  2. RAMIPRIL [Concomitant]
  3. CANDESARTAN [Concomitant]
  4. EBRANTIL [Concomitant]
  5. OXYCODON [Concomitant]
  6. TORASEMID [Concomitant]
  7. PREDNISOLON [Concomitant]
  8. FLUVASTATIN [Concomitant]
  9. ALFACALCIDOL [Concomitant]
  10. MOLSIDOMIN [Concomitant]
  11. PANTOPRAZOL [Concomitant]

REACTIONS (1)
  - Nephropathy [Not Recovered/Not Resolved]
